FAERS Safety Report 20423836 (Version 1)
Quarter: 2022Q1

REPORT INFORMATION
  Report Type: Report from Study
  Country: CA (occurrence: CA)
  Receive Date: 20220203
  Receipt Date: 20220203
  Transmission Date: 20220423
  Serious: Yes (Hospitalization)
  Sender: FDA-Public Use
  Company Number: CA-EXELIXIS-CABO-20036188

PATIENT
  Age: 63 Year
  Sex: Male

DRUGS (4)
  1. CABOMETYX [Suspect]
     Active Substance: CABOZANTINIB S-MALATE
     Indication: Renal cell carcinoma
     Dosage: 60 MG, QOD (EVERY SECOND DAY)
     Route: 048
     Dates: start: 20200611
  2. CABOMETYX [Suspect]
     Active Substance: CABOZANTINIB S-MALATE
     Dosage: 60 MG, QOD
     Route: 048
  3. CABOMETYX [Suspect]
     Active Substance: CABOZANTINIB S-MALATE
     Dosage: 60 MG QD
     Route: 048
  4. SUTENT [Concomitant]
     Active Substance: SUNITINIB MALATE
     Dosage: UNK

REACTIONS (4)
  - Diarrhoea [Unknown]
  - Blood magnesium decreased [Unknown]
  - Osteitis [Recovered/Resolved]
  - Inappropriate schedule of product administration [Unknown]

NARRATIVE: CASE EVENT DATE: 20200611
